FAERS Safety Report 9104866 (Version 1)
Quarter: 2013Q1

REPORT INFORMATION
  Report Type: Spontaneous
  Country: US (occurrence: US)
  Receive Date: 20130220
  Receipt Date: 20130220
  Transmission Date: 20140127
  Serious: No
  Sender: FDA-Public Use
  Company Number: US-PFIZER INC-2013061607

PATIENT
  Age: 57 Year
  Sex: Female
  Weight: 65.76 kg

DRUGS (3)
  1. RELPAX [Suspect]
     Indication: MIGRAINE
     Dosage: 40 MG, AS NEEDED
     Route: 048
     Dates: start: 2006
  2. PROPRANOLOL [Concomitant]
     Dosage: 120 MG, UNK
  3. TOPAMAX [Concomitant]
     Indication: MIGRAINE
     Dosage: 100 MG, UNK

REACTIONS (5)
  - Gastroenteritis viral [Unknown]
  - Nasopharyngitis [Unknown]
  - Cough [Unknown]
  - Influenza like illness [Unknown]
  - Sinus disorder [Unknown]
